FAERS Safety Report 7692804-7 (Version None)
Quarter: 2011Q3

REPORT INFORMATION
  Report Type: 
  Country: None (occurrence: None)
  Receive Date: 20110819
  Receipt Date: 20110809
  Transmission Date: 20111222
  Serious: Yes (Hospitalization, Other)
  Sender: FDA-Public Use
  Company Number: SE-JNJFOC-20110804940

PATIENT
  Sex: Female

DRUGS (2)
  1. RISPERDAL [Suspect]
     Indication: DEPRESSION
     Route: 065
     Dates: start: 20110615, end: 20110618
  2. MIRTAZAPINE [Suspect]
     Indication: DEPRESSION
     Route: 065
     Dates: start: 20110615

REACTIONS (2)
  - CLOSTRIDIUM DIFFICILE COLITIS [None]
  - HYPONATRAEMIA [None]
